FAERS Safety Report 5827059-9 (Version None)
Quarter: 2008Q3

REPORT INFORMATION
  Report Type: 
  Country: None (occurrence: None)
  Receive Date: 20080730
  Receipt Date: 20080722
  Transmission Date: 20090109
  Serious: Yes (Other)
  Sender: FDA-Public Use
  Company Number: B0360259A

PATIENT
  Age: 58 Year
  Sex: Male

DRUGS (4)
  1. PAROXETINE HCL [Suspect]
     Dosage: 20MG PER DAY
     Route: 065
     Dates: start: 19981221, end: 20000101
  2. PROCHLORPERAZINE [Concomitant]
     Dates: start: 20000717
  3. NITRAZEPAM [Concomitant]
     Dates: start: 20000501
  4. CLOMIPRAMINE HCL [Concomitant]
     Indication: ANXIETY
     Dates: start: 20020701, end: 20021001

REACTIONS (18)
  - AGITATION [None]
  - AMNESIA [None]
  - ANXIETY [None]
  - BALANCE DISORDER [None]
  - CONFUSIONAL STATE [None]
  - DIZZINESS [None]
  - DRUG WITHDRAWAL SYNDROME [None]
  - DYSKINESIA [None]
  - HYPERHIDROSIS [None]
  - MALAISE [None]
  - MYALGIA [None]
  - NAUSEA [None]
  - NIGHTMARE [None]
  - PARANOIA [None]
  - SLEEP DISORDER [None]
  - THOUGHT INSERTION [None]
  - TREMOR [None]
  - VERTIGO [None]
